FAERS Safety Report 5072771-5 (Version None)
Quarter: 2006Q3

REPORT INFORMATION
  Report Type: 
  Country: None (occurrence: None)
  Receive Date: 20060807
  Receipt Date: 20060725
  Transmission Date: 20061208
  Serious: Yes (Other)
  Sender: FDA-Public Use
  Company Number: PHBS2006BR11300

PATIENT
  Age: 50 Year
  Sex: Female
  Weight: 45 kg

DRUGS (2)
  1. ESTRADOT [Suspect]
     Indication: MENOPAUSE
     Dates: end: 20060601
  2. PURAN T4 [Concomitant]
     Indication: HYPOTHYROIDISM
     Dosage: 100 MG/DAY
     Route: 048
     Dates: start: 19980101

REACTIONS (11)
  - ALOPECIA [None]
  - BREAST MICROCALCIFICATION [None]
  - BREAST OPERATION [None]
  - DRY SKIN [None]
  - FEELING COLD [None]
  - FEELING HOT AND COLD [None]
  - HOT FLUSH [None]
  - HYPERHIDROSIS [None]
  - LYMPHADENOPATHY [None]
  - MOOD ALTERED [None]
  - TACHYCARDIA [None]
